FAERS Safety Report 5899497-X (Version None)
Quarter: 2008Q3

REPORT INFORMATION
  Report Type: 
  Country: None (occurrence: None)
  Receive Date: 20080925
  Receipt Date: 20080925
  Transmission Date: 20090109
  Serious: Yes (Other)
  Sender: FDA-Public Use
  Company Number: None

PATIENT
  Sex: Female

DRUGS (1)
  1. NEURONTIN [Suspect]
     Indication: BACK PAIN
     Dosage: 300 MG TID PO
     Route: 048
     Dates: start: 20060101

REACTIONS (2)
  - BURNING SENSATION [None]
  - PAIN IN EXTREMITY [None]
